FAERS Safety Report 5899470-1 (Version None)
Quarter: 2008Q3

REPORT INFORMATION
  Report Type: 
  Country: None (occurrence: None)
  Receive Date: 20080926
  Receipt Date: 20080916
  Transmission Date: 20090109
  Serious: Yes (Death)
  Sender: FDA-Public Use
  Company Number: GB-JNJFOC-20080903642

PATIENT

DRUGS (3)
  1. ASPIRIN [Suspect]
     Indication: ANTICOAGULANT THERAPY
     Route: 048
  2. COUMADIN [Suspect]
     Indication: ANTICOAGULANT THERAPY
     Route: 048
  3. CLOPIDOGREL [Suspect]
     Indication: ANTICOAGULANT THERAPY
     Route: 048

REACTIONS (1)
  - HAEMORRHAGE INTRACRANIAL [None]
